FAERS Safety Report 15959259 (Version 1)
Quarter: 2019Q1

REPORT INFORMATION
  Report Type: Spontaneous
  Country: US (occurrence: US)
  Receive Date: 20190214
  Receipt Date: 20190214
  Transmission Date: 20190417
  Serious: No
  Sender: FDA-Public Use
  Company Number: US-LEO PHARMA-316805

PATIENT
  Age: 71 Year
  Sex: Male

DRUGS (2)
  1. DAIVONEX [Suspect]
     Active Substance: CALCIPOTRIENE
     Indication: SKIN CANCER
     Route: 061
     Dates: start: 20190202
  2. FLUOROURACIL. [Suspect]
     Active Substance: FLUOROURACIL
     Indication: SKIN CANCER
     Route: 061
     Dates: start: 20190202

REACTIONS (9)
  - Dermatitis contact [Not Recovered/Not Resolved]
  - Skin burning sensation [Not Recovered/Not Resolved]
  - Blister [Not Recovered/Not Resolved]
  - Pruritus [Not Recovered/Not Resolved]
  - Erythema [Not Recovered/Not Resolved]
  - Product use in unapproved indication [Unknown]
  - Herpes zoster [Not Recovered/Not Resolved]
  - Scab [Not Recovered/Not Resolved]
  - Pain [Not Recovered/Not Resolved]

NARRATIVE: CASE EVENT DATE: 20190202
